FAERS Safety Report 18955962 (Version 1)
Quarter: 2021Q1

REPORT INFORMATION
  Report Type: Spontaneous
  Country: US (occurrence: US)
  Receive Date: 20210302
  Receipt Date: 20210302
  Transmission Date: 20210420
  Serious: No
  Sender: FDA-Public Use
  Company Number: US-SA-2020SA158383

PATIENT
  Age: 61 Year
  Sex: Male

DRUGS (2)
  1. TOUJEO [Suspect]
     Active Substance: INSULIN GLARGINE
     Indication: TYPE 2 DIABETES MELLITUS
     Dosage: 55 IU, QD
     Route: 065
     Dates: start: 202001
  2. TOUJEO [Suspect]
     Active Substance: INSULIN GLARGINE
     Dosage: 55 UNITS TWICE DAILY
     Route: 065

REACTIONS (1)
  - Inappropriate schedule of product administration [Unknown]
